FAERS Safety Report 20289290 (Version 3)
Quarter: 2022Q1

REPORT INFORMATION
  Report Type: Report from Study
  Country: US (occurrence: US)
  Receive Date: 20220104
  Receipt Date: 20220211
  Transmission Date: 20220423
  Serious: Yes (Hospitalization)
  Sender: FDA-Public Use
  Company Number: US-HORIZON THERAPEUTICS-HZN-2021-007691

PATIENT

DRUGS (3)
  1. TEPEZZA [Suspect]
     Active Substance: TEPROTUMUMAB-TRBW
     Indication: Endocrine ophthalmopathy
     Dosage: 1ST INFUSION
     Route: 042
     Dates: start: 20210824
  2. TEPEZZA [Suspect]
     Active Substance: TEPROTUMUMAB-TRBW
     Dosage: UNK (INFUSION)
     Route: 042
     Dates: start: 20211116
  3. TEPEZZA [Suspect]
     Active Substance: TEPROTUMUMAB-TRBW
     Dosage: UNK
     Route: 042
     Dates: start: 20211207

REACTIONS (9)
  - Epistaxis [Recovered/Resolved]
  - Blood pressure increased [Recovered/Resolved]
  - Dizziness [Unknown]
  - Chills [Recovered/Resolved]
  - Malaise [Unknown]
  - Vertigo [Unknown]
  - Fatigue [Unknown]
  - Headache [Recovered/Resolved]
  - Alopecia [Unknown]

NARRATIVE: CASE EVENT DATE: 20211201
